FAERS Safety Report 18349144 (Version 2)
Quarter: 2020Q4

REPORT INFORMATION
  Report Type: Spontaneous
  Country: DE (occurrence: DE)
  Receive Date: 20201006
  Receipt Date: 20201102
  Transmission Date: 20210114
  Serious: Yes (Hospitalization, Other)
  Sender: FDA-Public Use
  Company Number: DE-SA-2020SA270496

PATIENT

DRUGS (1)
  1. CABLIVI [Suspect]
     Active Substance: CAPLACIZUMAB-YHDP
     Indication: THROMBOTIC THROMBOCYTOPENIC PURPURA
     Dosage: UNK
     Route: 065
     Dates: start: 201906

REACTIONS (13)
  - Hemiplegia [Unknown]
  - Intensive care unit acquired weakness [Unknown]
  - Toxicity to various agents [Unknown]
  - Neurologic neglect syndrome [Unknown]
  - Cholestasis [Unknown]
  - Cholelithiasis [Unknown]
  - Lacunar infarction [Unknown]
  - Hepatic enzyme increased [Unknown]
  - Off label use [Unknown]
  - Vision blurred [Unknown]
  - Pupils unequal [Unknown]
  - Cerebellar infarction [Unknown]
  - Cataract [Unknown]

NARRATIVE: CASE EVENT DATE: 2019
